FAERS Safety Report 8407107-2 (Version None)
Quarter: 2012Q2

REPORT INFORMATION
  Report Type: 
  Country: None (occurrence: None)
  Receive Date: 20120604
  Receipt Date: 20120522
  Transmission Date: 20120825
  Serious: No
  Sender: FDA-Public Use
  Company Number: US-B.I. PHARMACEUTICALS,INC./RIDGEFIELD-2012-BP-11398BP

PATIENT
  Sex: Female

DRUGS (7)
  1. FLEXERIL [Concomitant]
     Indication: MUSCLE SPASMS
  2. ASPIRIN [Concomitant]
  3. METOPROLOL TARTRATE [Concomitant]
     Indication: HYPERTENSION
  4. SPIRIVA [Suspect]
     Indication: CHRONIC OBSTRUCTIVE PULMONARY DISEASE
     Route: 055
     Dates: start: 20080101, end: 20120401
  5. ZETIA [Concomitant]
     Indication: BLOOD CHOLESTEROL INCREASED
  6. SPIRIVA [Suspect]
     Dosage: 18 MCG
     Route: 055
     Dates: start: 20120401
  7. CIMETADINE [Concomitant]
     Indication: GASTROOESOPHAGEAL REFLUX DISEASE

REACTIONS (2)
  - CONTUSION [None]
  - PNEUMONIA [None]
